FAERS Safety Report 7428835-1 (Version None)
Quarter: 2011Q2

REPORT INFORMATION
  Report Type: 
  Country: None (occurrence: None)
  Receive Date: 20110421
  Receipt Date: 20110401
  Transmission Date: 20111010
  Serious: Yes (Hospitalization, Other)
  Sender: FDA-Public Use
  Company Number: PHHO2011BE04634

PATIENT
  Sex: Male
  Weight: 74 kg

DRUGS (7)
  1. EVEROLIMUS [Suspect]
     Dosage: 3 MG, QD
     Route: 048
     Dates: start: 20110226
  2. EVEROLIMUS [Suspect]
     Dosage: 4.5 MG,
     Route: 048
     Dates: start: 20110219, end: 20110225
  3. EVEROLIMUS [Suspect]
     Indication: RENAL TRANSPLANT
     Dosage: 2.25 MG, BID
     Route: 048
     Dates: start: 20090902
  4. MYFORTIC [Suspect]
     Indication: RENAL TRANSPLANT
     Dosage: 720 MG, BID
     Route: 048
     Dates: start: 20090602
  5. BASILIXIMAB [Concomitant]
     Indication: RENAL TRANSPLANT
     Dosage: 20 MG, ONCE/SINGLE
     Route: 042
     Dates: start: 20090601, end: 20090601
  6. BASILIXIMAB [Concomitant]
     Dosage: 20 MG, ONCE/SINGLE
     Route: 042
     Dates: start: 20090605, end: 20090605
  7. METHYLPREDNISOLONE [Suspect]
     Indication: RENAL TRANSPLANT
     Dosage: 4 MG, QD
     Route: 048
     Dates: start: 20090801

REACTIONS (7)
  - DEHYDRATION [None]
  - DEEP VEIN THROMBOSIS [None]
  - CYTOMEGALOVIRUS INFECTION [None]
  - DIARRHOEA [None]
  - RENAL FAILURE ACUTE [None]
  - PYREXIA [None]
  - HEPATIC ENZYME ABNORMAL [None]
